FAERS Safety Report 15182343 (Version 1)
Quarter: 2018Q3

REPORT INFORMATION
  Report Type: Spontaneous
  Country: US (occurrence: US)
  Receive Date: 20180723
  Receipt Date: 20180723
  Transmission Date: 20181010
  Serious: No
  Sender: FDA-Public Use
  Company Number: US-GLAXOSMITHKLINE-US2018125583

PATIENT
  Age: 68 Year
  Sex: Female

DRUGS (2)
  1. ABREVA [Suspect]
     Active Substance: DOCOSANOL
     Dosage: UNK(5 TIMES A DAY)
     Dates: start: 20180707, end: 20180707
  2. ABREVA [Suspect]
     Active Substance: DOCOSANOL
     Indication: ORAL HERPES
     Dosage: UNK
     Dates: start: 20180706, end: 20180706

REACTIONS (3)
  - Incorrect drug administration duration [Unknown]
  - Lip swelling [Recovered/Resolved]
  - Inappropriate schedule of drug administration [Unknown]
